FAERS Safety Report 16545919 (Version 1)
Quarter: 2019Q3

REPORT INFORMATION
  Report Type: Spontaneous
  Country: US (occurrence: US)
  Receive Date: 20190528
  Receipt Date: 20190528
  Transmission Date: 20191004
  Serious: Yes (Other)
  Sender: FDA-Public Use
  Company Number: None

PATIENT
  Age: 75 Year
  Sex: Male
  Weight: 95.25 kg

DRUGS (11)
  1. METFORMIN [Concomitant]
     Active Substance: METFORMIN HYDROCHLORIDE
  2. TUMSULOSIN [Concomitant]
  3. BENAZEPRIL [Concomitant]
     Active Substance: BENAZEPRIL HYDROCHLORIDE
  4. OXYCODONE TAB [Concomitant]
  5. PROMETHAZINE [Concomitant]
     Active Substance: PROMETHAZINE HYDROCHLORIDE
  6. ADALAT CC [Suspect]
     Active Substance: NIFEDIPINE
     Indication: BLOOD PRESSURE MANAGEMENT
     Dosage: ?          QUANTITY:30 MG MILLIGRAM(S);OTHER FREQUENCY:EVERY 24 HRS;?
     Route: 048
     Dates: start: 201904, end: 20190405
  7. VENTOLIN HFA [Concomitant]
     Active Substance: ALBUTEROL SULFATE
  8. DULOXETINE HCL 30MG CPEP [Concomitant]
     Active Substance: DULOXETINE HYDROCHLORIDE
     Indication: DEPRESSION
     Dosage: ?          QUANTITY:1 CAP;?
     Dates: start: 20190115, end: 20190116
  9. MELOXICAM. [Concomitant]
     Active Substance: MELOXICAM
  10. INSULIN [Concomitant]
     Active Substance: INSULIN NOS
  11. GAPENTIN [Concomitant]
     Active Substance: GABAPENTIN

REACTIONS (3)
  - Agitation [None]
  - Neuropathy peripheral [None]
  - Burning sensation [None]

NARRATIVE: CASE EVENT DATE: 20190406
